FAERS Safety Report 9087143 (Version 3)
Quarter: 2015Q4

REPORT INFORMATION
  Report Type: Report from Study
  Country: US (occurrence: US)
  Receive Date: 20130131
  Receipt Date: 20151207
  Transmission Date: 20160305
  Serious: Yes (Death)
  Sender: FDA-Public Use
  Company Number: US-ROCHE-1186051

PATIENT
  Sex: Female
  Weight: 88.98 kg

DRUGS (20)
  1. CARBOPLATIN. [Concomitant]
     Active Substance: CARBOPLATIN
     Route: 065
  2. DEXAMETHASONE. [Concomitant]
     Active Substance: DEXAMETHASONE
     Route: 048
  3. SOLU-CORTEF [Concomitant]
     Active Substance: HYDROCORTISONE SODIUM SUCCINATE
     Route: 065
  4. AVASTIN [Suspect]
     Active Substance: BEVACIZUMAB
     Dosage: RECEIVED ON 12/JUN/2011, 06/DEC/2011
     Route: 042
  5. KEPPRA [Concomitant]
     Active Substance: LEVETIRACETAM
     Route: 048
  6. RITALIN [Concomitant]
     Active Substance: METHYLPHENIDATE HYDROCHLORIDE
     Route: 048
  7. ONDANSETRON [Concomitant]
     Active Substance: ONDANSETRON
     Route: 042
  8. CARBOPLATIN. [Concomitant]
     Active Substance: CARBOPLATIN
     Route: 065
  9. IBUPROFEN. [Concomitant]
     Active Substance: IBUPROFEN
     Route: 048
  10. HEPARIN [Concomitant]
     Active Substance: HEPARIN SODIUM
  11. DEXAMETHASONE. [Concomitant]
     Active Substance: DEXAMETHASONE
     Route: 048
  12. DEXAMETHASONE. [Concomitant]
     Active Substance: DEXAMETHASONE
     Route: 048
  13. AVASTIN [Suspect]
     Active Substance: BEVACIZUMAB
     Indication: BRAIN NEOPLASM MALIGNANT
     Dosage: (10 MG/KG), RECEIVED ON 22/AUG/2011
     Route: 042
  14. CARBOPLATIN. [Concomitant]
     Active Substance: CARBOPLATIN
     Route: 065
  15. AVASTIN [Suspect]
     Active Substance: BEVACIZUMAB
     Indication: BRAIN NEOPLASM MALIGNANT
     Dosage: RECEIVED ON 06/SEP/2011 AND 20/SEP/2011(10 MG/KG)
     Route: 042
  16. ZOLPIDEM [Concomitant]
     Active Substance: ZOLPIDEM\ZOLPIDEM TARTRATE
     Route: 048
  17. DECADRON [Concomitant]
     Active Substance: DEXAMETHASONE
  18. AVASTIN [Suspect]
     Active Substance: BEVACIZUMAB
     Indication: GLIOBLASTOMA
     Dosage: RECEIVED ON 18/OCT/2011, 01/NOV/2011, 23/NOV/201
     Route: 042
  19. LISINOPRIL. [Concomitant]
     Active Substance: LISINOPRIL
     Route: 048
  20. PRAVASTATIN [Concomitant]
     Active Substance: PRAVASTATIN\PRAVASTATIN SODIUM
     Route: 048

REACTIONS (28)
  - Fatigue [Not Recovered/Not Resolved]
  - Asthenia [Unknown]
  - Feeling hot [Unknown]
  - Back pain [Unknown]
  - Headache [Unknown]
  - Neoplasm progression [Fatal]
  - Dysarthria [Not Recovered/Not Resolved]
  - Balance disorder [Unknown]
  - Feeling cold [Unknown]
  - Sensory loss [Unknown]
  - Coordination abnormal [Unknown]
  - Sluggishness [Unknown]
  - Rash [Unknown]
  - Vision blurred [Unknown]
  - Hypoaesthesia [Unknown]
  - Arthralgia [Unknown]
  - Rhinorrhoea [Unknown]
  - Skin lesion [Recovering/Resolving]
  - Oedema peripheral [Unknown]
  - Nausea [Unknown]
  - Blood blister [Unknown]
  - Neck pain [Unknown]
  - Myalgia [Unknown]
  - Necrosis [Recovering/Resolving]
  - Hemiparesis [Unknown]
  - Eating disorder [Not Recovered/Not Resolved]
  - Aphasia [Not Recovered/Not Resolved]
  - Paraesthesia [Unknown]
